FAERS Safety Report 6063949-2 (Version None)
Quarter: 2009Q1

REPORT INFORMATION
  Report Type: 
  Country: None (occurrence: None)
  Receive Date: 20090204
  Receipt Date: 20090126
  Transmission Date: 20090719
  Serious: Yes (Other)
  Sender: FDA-Public Use
  Company Number: PHHY2009FR02929

PATIENT
  Sex: Male

DRUGS (7)
  1. STALEVO 100 [Suspect]
     Indication: PARKINSON'S DISEASE
     Dosage: 5 DF DAILY
     Dates: start: 20080515, end: 20080610
  2. STALEVO 100 [Suspect]
     Dosage: UNK
     Dates: start: 20080630, end: 20080707
  3. MODOPAR [Concomitant]
     Indication: PARKINSON'S DISEASE
  4. COMTAN [Concomitant]
     Indication: PARKINSON'S DISEASE
     Dosage: 5 DOSAGE FORM DAILY
  5. DOPERGIN [Concomitant]
     Dosage: 4 DOSAGE FORM DAILY
  6. ALDACTONE [Concomitant]
  7. IRBESARTAN [Concomitant]

REACTIONS (1)
  - PSORIASIS [None]
